FAERS Safety Report 6913690-6 (Version None)
Quarter: 2010Q3

REPORT INFORMATION
  Report Type: 
  Country: None (occurrence: None)
  Receive Date: 20100719
  Receipt Date: 20090324
  Transmission Date: 20110219
  Serious: No
  Sender: FDA-Public Use
  Company Number: 2009-01060

PATIENT
  Age: 54 Year
  Sex: Female
  Weight: 61.2356 kg

DRUGS (4)
  1. ZICAM COLD REMEDY GEL SWABS [Suspect]
     Dosage: Q 4 HOURS/4 DAYS
     Dates: start: 20090320, end: 20090324
  2. TRICOR [Concomitant]
  3. SPIRONOLACTONE [Concomitant]
  4. PEPCID [Concomitant]

REACTIONS (2)
  - AGEUSIA [None]
  - ANOSMIA [None]
